FAERS Safety Report 6615442-3 (Version None)
Quarter: 2010Q1

REPORT INFORMATION
  Report Type: 
  Country: None (occurrence: None)
  Receive Date: 20100305
  Receipt Date: 20100225
  Transmission Date: 20100710
  Serious: Yes (Hospitalization)
  Sender: FDA-Public Use
  Company Number: FR-ABBOTT-10P-056-0617491-00

PATIENT
  Age: 22 Year
  Sex: Female

DRUGS (8)
  1. DEPAKENE [Suspect]
     Indication: EPILEPSY
     Route: 048
     Dates: start: 20040501, end: 20090301
  2. DEPAKENE [Suspect]
     Route: 048
     Dates: start: 20090301, end: 20090527
  3. RISPERDAL [Suspect]
     Indication: SCHIZOPHRENIA
     Route: 048
     Dates: start: 20080301, end: 20090301
  4. RISPERDAL [Suspect]
     Route: 048
     Dates: start: 20090820
  5. NEULEPTIL [Suspect]
     Indication: PSYCHOTIC DISORDER
     Route: 048
     Dates: start: 20090301
  6. URBANYL [Concomitant]
     Indication: DRUG USE FOR UNKNOWN INDICATION
     Dates: start: 20090301
  7. LEPTICUR [Concomitant]
     Indication: DRUG USE FOR UNKNOWN INDICATION
     Dates: start: 20080301
  8. DUPHALAC [Concomitant]
     Indication: DRUG USE FOR UNKNOWN INDICATION
     Dates: start: 20090515, end: 20090527

REACTIONS (6)
  - AKINESIA [None]
  - AMIMIA [None]
  - EXTRAPYRAMIDAL DISORDER [None]
  - GAIT DISTURBANCE [None]
  - TREATMENT NONCOMPLIANCE [None]
  - TREMOR [None]
